FAERS Safety Report 17263214 (Version 1)
Quarter: 2019Q4

REPORT INFORMATION
  Report Type: Spontaneous
  Country: US (occurrence: US)
  Receive Date: 20191218
  Receipt Date: 20191218
  Transmission Date: 20200122
  Serious: Yes (Hospitalization)
  Sender: FDA-Public Use
  Company Number: None

PATIENT
  Age: 81 Year
  Sex: Male

DRUGS (1)
  1. RITUXAN [Suspect]
     Active Substance: RITUXIMAB
     Indication: LYMPHOMA
     Route: 042
     Dates: start: 20191112, end: 20191112

REACTIONS (8)
  - Sputum culture positive [None]
  - Organising pneumonia [None]
  - Disease progression [None]
  - Pneumocystis jirovecii pneumonia [None]
  - Pleural effusion [None]
  - Lymphoma [None]
  - Haemophilus infection [None]
  - Rhinovirus infection [None]

NARRATIVE: CASE EVENT DATE: 20191212
